FAERS Safety Report 16889222 (Version 1)
Quarter: 2019Q4

REPORT INFORMATION
  Report Type: Spontaneous
  Country: US (occurrence: US)
  Receive Date: 20190809
  Receipt Date: 20190809
  Transmission Date: 20200122
  Serious: Yes (Hospitalization)
  Sender: FDA-Public Use
  Company Number: None

PATIENT
  Age: 44 Year
  Sex: Male
  Weight: 82.5 kg

DRUGS (1)
  1. XELODA [Suspect]
     Active Substance: CAPECITABINE
     Dates: end: 20181017

REACTIONS (6)
  - Fistula [None]
  - Pelvic abscess [None]
  - Anastomotic leak [None]
  - Pain [None]
  - Pelvic sepsis [None]
  - Perirectal abscess [None]

NARRATIVE: CASE EVENT DATE: 20190212
